FAERS Safety Report 5696154-X (Version None)
Quarter: 2008Q2

REPORT INFORMATION
  Report Type: 
  Country: None (occurrence: None)
  Receive Date: 20080407
  Receipt Date: 20080331
  Transmission Date: 20081010
  Serious: No
  Sender: FDA-Public Use
  Company Number: US-BAXTER-2008BH002939

PATIENT
  Age: 54 Year
  Sex: Male
  Weight: 71 kg

DRUGS (1)
  1. MILRINONE LACTATE [Suspect]
     Indication: DRUG USE FOR UNKNOWN INDICATION
     Route: 042

REACTIONS (2)
  - CHEST PAIN [None]
  - DEVICE MALFUNCTION [None]
